FAERS Safety Report 24384982 (Version 1)
Quarter: 2024Q4

REPORT INFORMATION
  Report Type: Spontaneous
  Country: US (occurrence: US)
  Receive Date: 20241001
  Receipt Date: 20241001
  Transmission Date: 20250115
  Serious: Yes (Other)
  Sender: ELI LILLY AND CO
  Company Number: US-ELI_LILLY_AND_COMPANY-US202409012575

PATIENT
  Age: 82 Year
  Sex: Female

DRUGS (3)
  1. OMVOH [Suspect]
     Active Substance: MIRIKIZUMAB-MRKZ
     Indication: Colitis ulcerative
     Dosage: 200 MG, UNKNOWN
     Route: 058
     Dates: start: 20240905
  2. BUDESONIDE [Concomitant]
     Active Substance: BUDESONIDE
     Indication: Colitis ulcerative
     Dosage: 9 MG, DAILY
     Route: 065
  3. METHENAMINE [Concomitant]
     Active Substance: METHENAMINE
     Indication: Colitis ulcerative

REACTIONS (4)
  - Hypersensitivity [Recovered/Resolved]
  - Heart rate increased [Unknown]
  - Dizziness [Unknown]
  - Injection site pain [Unknown]

NARRATIVE: CASE EVENT DATE: 20240901
